FAERS Safety Report 23078846 (Version 1)
Quarter: 2023Q4

REPORT INFORMATION
  Report Type: Spontaneous
  Country: GB (occurrence: GB)
  Receive Date: 20231018
  Receipt Date: 20231018
  Transmission Date: 20240109
  Serious: Yes (Other)
  Sender: FDA-Public Use
  Company Number: None

PATIENT
  Age: 82 Year
  Sex: Male
  Weight: 125 kg

DRUGS (8)
  1. TERBINAFINE [Suspect]
     Active Substance: TERBINAFINE
     Indication: Fungal infection
     Dosage: 250 MILLIGRAM, QD
     Route: 065
     Dates: start: 20230913
  2. ATORVASTATIN [Concomitant]
     Active Substance: ATORVASTATIN
     Dosage: 1 DOSAGE FORM, QD
     Route: 065
     Dates: start: 20220318
  3. BENDROFLUMETHIAZIDE [Concomitant]
     Active Substance: BENDROFLUMETHIAZIDE
     Dosage: 1 DOSAGE FORM, QD
     Route: 065
     Dates: start: 20220318
  4. BETAHISTINE [Concomitant]
     Active Substance: BETAHISTINE
     Dosage: 1 DOSAGE FORM, AS NECESSARY
     Route: 065
     Dates: start: 20220318
  5. CANDESARTAN [Concomitant]
     Active Substance: CANDESARTAN
     Dosage: 1 DOSAGE FORM, QD
     Route: 065
     Dates: start: 20220318
  6. COCODAMOL [Concomitant]
     Active Substance: ACETAMINOPHEN\CODEINE PHOSPHATE
     Dosage: 2 DOSAGE FORM, QID
     Route: 065
     Dates: start: 20220318
  7. DICLOFENAC DIETHYLAMINE [Concomitant]
     Active Substance: DICLOFENAC DIETHYLAMINE
     Dosage: 1 DOSAGE FORM, BID (APPLY)
     Route: 061
     Dates: start: 20220318
  8. TAMSULOSIN HYDROCHLORIDE [Concomitant]
     Active Substance: TAMSULOSIN HYDROCHLORIDE
     Dosage: 1 DOSAGE FORM, QD (FOR WATERWORKS)
     Route: 065
     Dates: start: 20220318

REACTIONS (3)
  - Peripheral sensorimotor neuropathy [Unknown]
  - Hypoaesthesia [Unknown]
  - Paraesthesia [Unknown]

NARRATIVE: CASE EVENT DATE: 20230925
